FAERS Safety Report 12826650 (Version 1)
Quarter: 2016Q4

REPORT INFORMATION
  Report Type: Spontaneous
  Country: US (occurrence: US)
  Receive Date: 20161007
  Receipt Date: 20161007
  Transmission Date: 20170207
  Serious: No
  Sender: FDA-Public Use
  Company Number: US-WATSON-2016-15941

PATIENT
  Age: 72 Year
  Sex: Male

DRUGS (3)
  1. FENTANYL-50 (WATSON LABORATORIES) [Suspect]
     Active Substance: FENTANYL
     Indication: PAIN
     Dosage: 50 MCG, Q1H
     Route: 062
     Dates: end: 201605
  2. FENTANYL-50 (WATSON LABORATORIES) [Suspect]
     Active Substance: FENTANYL
     Dosage: 50 MCG, Q1H
     Route: 062
     Dates: start: 201606
  3. FENTANYL-75 (WATSON LABORATORIES) [Suspect]
     Active Substance: FENTANYL
     Indication: PAIN
     Dosage: 75 MCG, Q1H
     Route: 062
     Dates: start: 201605, end: 201606

REACTIONS (4)
  - Glassy eyes [Recovered/Resolved]
  - Somnolence [Recovered/Resolved]
  - Drug ineffective [Not Recovered/Not Resolved]
  - Incoherent [Recovered/Resolved]

NARRATIVE: CASE EVENT DATE: 201606
